FAERS Safety Report 5881836-7 (Version None)
Quarter: 2008Q3

REPORT INFORMATION
  Report Type: 
  Country: None (occurrence: None)
  Receive Date: 20080912
  Receipt Date: 20080707
  Transmission Date: 20090109
  Serious: No
  Sender: FDA-Public Use
  Company Number: US-ABBOTT-08P-163-0462851-00

PATIENT
  Sex: Female
  Weight: 54.48 kg

DRUGS (1)
  1. HUMIRA [Suspect]
     Indication: CROHN'S DISEASE
     Route: 058
     Dates: start: 20080602

REACTIONS (6)
  - ABDOMINAL PAIN [None]
  - FATIGUE [None]
  - INCREASED TENDENCY TO BRUISE [None]
  - NAUSEA [None]
  - VOMITING [None]
  - WOUND INFECTION [None]
